FAERS Safety Report 5656146-3 (Version None)
Quarter: 2008Q1

REPORT INFORMATION
  Report Type: 
  Country: None (occurrence: None)
  Receive Date: 20080305
  Receipt Date: 20080220
  Transmission Date: 20080703
  Serious: Yes (Other)
  Sender: FDA-Public Use
  Company Number: 18401

PATIENT
  Age: 7 Year
  Sex: Female

DRUGS (1)
  1. METHOTREXATE [Suspect]
     Indication: LYMPHOCYTIC LEUKAEMIA
     Dosage: 5 G/M2,OTH,IV;12 MG,OTH,IT
     Route: 037

REACTIONS (5)
  - AFFECT LABILITY [None]
  - CEREBROVASCULAR ACCIDENT [None]
  - CHOREOATHETOSIS [None]
  - NUCLEAR MAGNETIC RESONANCE IMAGING BRAIN ABNORMAL [None]
  - TOXIC ENCEPHALOPATHY [None]
